FAERS Safety Report 8858568 (Version 1)
Quarter: 2012Q4

REPORT INFORMATION
  Report Type: Report from Study
  Country: JP (occurrence: JP)
  Receive Date: 20121024
  Receipt Date: 20121024
  Transmission Date: 20130627
  Serious: Yes (Hospitalization)
  Sender: FDA-Public Use
  Company Number: JP-VERTEX PHARMACEUTICAL INC.-AE-2012-009133

PATIENT
  Age: 69 Year
  Sex: Female

DRUGS (12)
  1. VX-950 [Suspect]
     Indication: HEPATITIS C
     Dosage: 1500 mg, qd
     Route: 048
     Dates: start: 20120516, end: 20120612
  2. REBETOL [Suspect]
     Indication: HEPATITIS C
     Dosage: 600 mg, qd
     Route: 048
     Dates: start: 20120516, end: 20120528
  3. REBETOL [Suspect]
     Dosage: 400 mg, qd
     Route: 048
     Dates: start: 20120529, end: 20120612
  4. PEGINTRON [Suspect]
     Indication: HEPATITIS C
     Dosage: 1.5 ?g/kg, UNK
     Route: 058
     Dates: start: 20120516, end: 20120522
  5. PEGINTRON [Suspect]
     Dosage: 0.75 ?g/kg, UNK
     Route: 058
     Dates: start: 20120530, end: 20120612
  6. METHYCOOL [Concomitant]
     Dosage: 1000 ?g, qd
     Route: 048
  7. ALINAMIN-F                         /00257802/ [Concomitant]
     Dosage: 100 mg, qd
     Route: 048
  8. KENTON                             /06441201/ [Concomitant]
     Dosage: 400 mg, qd
     Route: 048
  9. CALBLOCK [Concomitant]
     Dosage: 16 mg, qd
     Route: 048
  10. SELTOUCH [Concomitant]
     Dosage: UNK, prn
     Route: 061
     Dates: start: 20120521, end: 20120612
  11. TAKEPRON [Concomitant]
     Dosage: qd
     Route: 048
     Dates: start: 20120518
  12. GASMOTIN [Concomitant]
     Dosage: 15 mg, qd
     Route: 048
     Dates: start: 20120518

REACTIONS (4)
  - Decreased appetite [Recovered/Resolved]
  - Malaise [Recovered/Resolved]
  - Vomiting [Recovered/Resolved]
  - Nausea [Recovered/Resolved]
